FAERS Safety Report 4536385-5 (Version None)
Quarter: 2004Q4

REPORT INFORMATION
  Report Type: 
  Country: None (occurrence: None)
  Receive Date: 20041223
  Receipt Date: 20040915
  Transmission Date: 20050328
  Serious: No
  Sender: FDA-Public Use
  Company Number: US-GLAXOSMITHKLINE-A0525792A

PATIENT
  Age: 87 Year
  Sex: Female

DRUGS (7)
  1. FLONASE [Suspect]
     Indication: ILL-DEFINED DISORDER
     Dosage: 1SPR PER DAY
     Route: 065
     Dates: end: 20040912
  2. OSCAL [Concomitant]
  3. ASPIRIN [Concomitant]
  4. VITAMIN C [Concomitant]
  5. VITAMIN E [Concomitant]
  6. LUTEIN [Concomitant]
     Route: 065
  7. CENTRUM [Concomitant]

REACTIONS (1)
  - HEADACHE [None]
